FAERS Safety Report 6820033-5 (Version None)
Quarter: 2010Q3

REPORT INFORMATION
  Report Type: 
  Country: None (occurrence: None)
  Receive Date: 20100707
  Receipt Date: 20100621
  Transmission Date: 20110219
  Serious: Yes (Hospitalization)
  Sender: FDA-Public Use
  Company Number: A0789997A

PATIENT
  Age: 56 Year
  Sex: Female
  Weight: 87.7 kg

DRUGS (11)
  1. AVANDIA [Suspect]
     Indication: TYPE 2 DIABETES MELLITUS
     Dosage: 8MG PER DAY
     Route: 048
     Dates: start: 19990101, end: 20040101
  2. GLUCOTROL [Concomitant]
  3. CARDENE [Concomitant]
  4. ZOCOR [Concomitant]
  5. RELAFEN [Concomitant]
  6. PAXIL [Concomitant]
  7. ESTRADIOL [Concomitant]
  8. CLONIDINE [Concomitant]
  9. ZAROXOLYN [Concomitant]
  10. TOPROL-XL [Concomitant]
  11. PRAVACHOL [Concomitant]

REACTIONS (17)
  - ARRHYTHMIA [None]
  - ARTERIOSCLEROSIS CORONARY ARTERY [None]
  - BREAST CANCER FEMALE [None]
  - CARDIOVASCULAR DISORDER [None]
  - CORONARY ARTERY BYPASS [None]
  - CORONARY ARTERY DISEASE [None]
  - HAEMOTHORAX [None]
  - HYPERTENSION [None]
  - INTRACARDIAC THROMBUS [None]
  - LEFT ATRIAL DILATATION [None]
  - MITRAL VALVE INCOMPETENCE [None]
  - MYOCARDIAL INFARCTION [None]
  - PLEURAL EFFUSION [None]
  - SUPRAVENTRICULAR EXTRASYSTOLES [None]
  - SYNCOPE [None]
  - TRICUSPID VALVE INCOMPETENCE [None]
  - VENTRICULAR EXTRASYSTOLES [None]
